FAERS Safety Report 4537457-1 (Version None)
Quarter: 2004Q4

REPORT INFORMATION
  Report Type: 
  Country: None (occurrence: None)
  Receive Date: 20041223
  Receipt Date: 20041022
  Transmission Date: 20050328
  Serious: Yes (Hospitalization)
  Sender: FDA-Public Use
  Company Number: DE-MERCK-0410DEU00698

PATIENT
  Sex: Female

DRUGS (10)
  1. VIOXX [Suspect]
     Indication: SPINAL OSTEOARTHRITIS
     Route: 048
     Dates: start: 20010511, end: 20030601
  2. VIOXX [Suspect]
     Route: 048
     Dates: start: 20030601
  3. VIOXX [Suspect]
     Indication: ARTHRALGIA
     Route: 048
     Dates: start: 20010511, end: 20030601
  4. VIOXX [Suspect]
     Route: 048
     Dates: start: 20030601
  5. TILIDINE HYDROCHLORIDE [Concomitant]
     Indication: PAIN
     Route: 048
  6. CHLORMEZANONE [Concomitant]
     Indication: PAIN
     Route: 048
  7. MOXONIDINE [Concomitant]
     Route: 048
  8. DISTIGMINE BROMIDE [Concomitant]
     Route: 048
  9. TIMOLOL [Concomitant]
     Route: 048
  10. METOCLOPRAMIDE [Concomitant]
     Route: 048

REACTIONS (8)
  - ABDOMINAL PAIN UPPER [None]
  - DISEASE RECURRENCE [None]
  - DIZZINESS [None]
  - DYSPEPSIA [None]
  - HEADACHE [None]
  - HYPERTENSION [None]
  - INGUINAL HERNIA [None]
  - INSOMNIA [None]
